FAERS Safety Report 26116802 (Version 1)
Quarter: 2025Q4

REPORT INFORMATION
  Report Type: Spontaneous
  Country: US (occurrence: US)
  Receive Date: 20251203
  Receipt Date: 20251203
  Transmission Date: 20260118
  Serious: No
  Sender: NOVARTIS
  Company Number: US-002147023-NVSC2025US184913

PATIENT
  Sex: Female

DRUGS (2)
  1. MEKINIST [Suspect]
     Active Substance: TRAMETINIB DIMETHYL SULFOXIDE
     Indication: Malignant melanoma
     Dosage: 2 MG (EVERY OTHER DAY)
     Route: 048
     Dates: start: 201808
  2. TAFINLAR [Suspect]
     Active Substance: DABRAFENIB MESYLATE
     Indication: Malignant melanoma
     Dosage: 3 DOSAGE FORM, TID ( ( TAKE 1 CAPSULE BY MOUTH IN THE MORNING AND TAKE 2 CAPULES BY MOUTH IN THE EVE
     Route: 048
     Dates: start: 202503

REACTIONS (1)
  - Illness [Unknown]
